FAERS Safety Report 4661803-1 (Version None)
Quarter: 2005Q2

REPORT INFORMATION
  Report Type: 
  Country: None (occurrence: None)
  Receive Date: 20050512
  Receipt Date: 20050512
  Transmission Date: 20051028
  Serious: No
  Sender: FDA-Public Use
  Company Number: None

PATIENT
  Sex: Female

DRUGS (1)
  1. DOXEPIN (GENERIC) 49884-0219-01 50 MG [Suspect]
     Indication: MAJOR DEPRESSION
     Dosage: 50 MG BID

REACTIONS (3)
  - AGITATION [None]
  - CONFUSIONAL STATE [None]
  - PHARMACEUTICAL PRODUCT COMPLAINT [None]
